FAERS Safety Report 6814372-1 (Version None)
Quarter: 2010Q3

REPORT INFORMATION
  Report Type: 
  Country: None (occurrence: None)
  Receive Date: 20100702
  Receipt Date: 20100618
  Transmission Date: 20110219
  Serious: Yes (Hospitalization, Other)
  Sender: FDA-Public Use
  Company Number: DE-ELI_LILLY_AND_COMPANY-DE201005005600

PATIENT
  Sex: Male
  Weight: 51 kg

DRUGS (12)
  1. PEMETREXED [Suspect]
     Indication: NON-SMALL CELL LUNG CANCER
     Dosage: 770 MG, ONE IN 3 WEEKS
     Route: 042
     Dates: start: 20100421
  2. CISPLATIN [Suspect]
     Indication: NON-SMALL CELL LUNG CANCER
     Dosage: 115 MG, ONE IN 3 WEEKS
     Route: 042
     Dates: start: 20100421
  3. OTHER PHARMA COMPANY INV DRUG [Suspect]
     Indication: NON-SMALL CELL LUNG CANCER
     Dosage: 800 MG, TWO IN 3 WEEKS
     Route: 042
     Dates: start: 20100421
  4. NOVALGIN /06276704/ [Concomitant]
     Indication: ABDOMINAL PAIN
     Dosage: 20 GTT, 4/D
     Dates: start: 20091217
  5. SPIRIVA [Concomitant]
     Indication: CHRONIC OBSTRUCTIVE PULMONARY DISEASE
     Dosage: 1 D/F, DAILY (1/D)
     Dates: start: 20070623
  6. ALBUTEROL [Concomitant]
     Indication: CHRONIC OBSTRUCTIVE PULMONARY DISEASE
     Dosage: 2 IN 1, AS NEEDED
     Dates: start: 20080317
  7. MUCOFALK [Concomitant]
     Indication: DIARRHOEA
     Dosage: 1-3, DAILY
     Dates: start: 20080317
  8. FOLSAURE [Concomitant]
     Indication: PREMEDICATION
     Dosage: UNK, 2/D
     Dates: start: 20100412
  9. VITAMIN B-12 [Concomitant]
     Indication: PREMEDICATION
     Dosage: 1000 MG, 1 IN 9 WEEKS
     Route: 030
     Dates: start: 20100412
  10. BERODUAL [Concomitant]
     Indication: DYSPNOEA
     Dates: start: 20100511
  11. PANTOZOL [Concomitant]
     Indication: PROPHYLAXIS
     Dosage: 40 MG, UNK
     Dates: start: 20100511, end: 20100518
  12. SODIUM CHLORIDE [Concomitant]
     Indication: DEHYDRATION
     Dates: start: 20100511, end: 20100513

REACTIONS (2)
  - ANAEMIA [None]
  - GENERAL PHYSICAL HEALTH DETERIORATION [None]
